FAERS Safety Report 12928263 (Version 1)
Quarter: 2016Q4

REPORT INFORMATION
  Report Type: Spontaneous
  Country: US (occurrence: US)
  Receive Date: 20161110
  Receipt Date: 20161110
  Transmission Date: 20170207
  Serious: No
  Sender: FDA-Public Use
  Company Number: US-BIOGEN-2016BI00314418

PATIENT
  Sex: Female

DRUGS (2)
  1. TECFIDERA [Suspect]
     Active Substance: DIMETHYL FUMARATE
     Route: 065
     Dates: start: 20160802
  2. TECFIDERA [Suspect]
     Active Substance: DIMETHYL FUMARATE
     Indication: MULTIPLE SCLEROSIS
     Route: 065
     Dates: start: 20140902, end: 20150101

REACTIONS (7)
  - Pain [Unknown]
  - Skin burning sensation [Unknown]
  - Burning sensation [Unknown]
  - Pruritus [Unknown]
  - Gastric disorder [Unknown]
  - Drug intolerance [Unknown]
  - Hot flush [Unknown]
